FAERS Safety Report 5323584-8 (Version None)
Quarter: 2007Q2

REPORT INFORMATION
  Report Type: 
  Country: None (occurrence: None)
  Receive Date: 20070509
  Receipt Date: 20070509
  Transmission Date: 20071010
  Serious: Yes (Other)
  Sender: FDA-Public Use
  Company Number: None

PATIENT
  Sex: Female
  Weight: 193 kg

DRUGS (2)
  1. OVRAL [Suspect]
     Indication: DYSMENORRHOEA
     Dates: start: 20020101
  2. OVRAL [Suspect]
     Indication: MENORRHAGIA
     Dates: start: 20020101

REACTIONS (2)
  - MIGRAINE [None]
  - PHARMACEUTICAL PRODUCT COMPLAINT [None]
